FAERS Safety Report 21251108 (Version 1)
Quarter: 2022Q3

REPORT INFORMATION
  Report Type: Spontaneous
  Country: HR (occurrence: HR)
  Receive Date: 20220824
  Receipt Date: 20220824
  Transmission Date: 20221027
  Serious: Yes (Death)
  Sender: FDA-Public Use
  Company Number: HR-BoehringerIngelheim-2022-BI-188679

PATIENT
  Sex: Male

DRUGS (1)
  1. OFEV [Suspect]
     Active Substance: NINTEDANIB
     Indication: Pulmonary toxicity
     Dates: start: 202203

REACTIONS (2)
  - Pneumonia bacterial [Fatal]
  - Product use in unapproved indication [Unknown]
